FAERS Safety Report 7817155-9 (Version None)
Quarter: 2011Q4

REPORT INFORMATION
  Report Type: 
  Country: None (occurrence: None)
  Receive Date: 20111017
  Receipt Date: 20111017
  Transmission Date: 20120403
  Serious: Yes (Other)
  Sender: FDA-Public Use
  Company Number: None

PATIENT
  Sex: Female
  Weight: 63.502 kg

DRUGS (1)
  1. KETOCONAZOLE [Suspect]
     Indication: DRY SKIN
     Dates: start: 20111011, end: 20111011

REACTIONS (6)
  - PRURITUS [None]
  - MUSCLE TIGHTNESS [None]
  - UNEVALUABLE EVENT [None]
  - SCAB [None]
  - ERYTHEMA [None]
  - EYE SWELLING [None]
